FAERS Safety Report 12671043 (Version 1)
Quarter: 2016Q3

REPORT INFORMATION
  Report Type: Spontaneous
  Country: US (occurrence: None)
  Receive Date: 20160819
  Receipt Date: 20160819
  Transmission Date: 20161109
  Serious: Yes (Disabling)
  Sender: FDA-Public Use
  Company Number: None

PATIENT
  Age: 65 Year
  Sex: Male

DRUGS (4)
  1. ZOLPIDEM [Concomitant]
     Active Substance: ZOLPIDEM\ZOLPIDEM TARTRATE
  2. MECLIZINE [Concomitant]
     Active Substance: MECLIZINE HYDROCHLORIDE
  3. DIAZEPAM. [Concomitant]
     Active Substance: DIAZEPAM
  4. ERYTHROMYCIN OPTHALMIC OINTMENT USP, 0.5% AKORN [Suspect]
     Active Substance: ERYTHROMYCIN
     Indication: EYE INFECTION BACTERIAL
     Dosage: 0.5% 1/2 INCH RIBBON THREE TIMES A DAY APPLIED TO EYE(S)
     Dates: start: 20160613, end: 20160817

REACTIONS (4)
  - Eye irritation [None]
  - Corneal erosion [None]
  - Product physical consistency issue [None]
  - Product substitution issue [None]

NARRATIVE: CASE EVENT DATE: 20160613
